FAERS Safety Report 10103291 (Version 2)
Quarter: 2014Q2

REPORT INFORMATION
  Report Type: Spontaneous
  Country: US (occurrence: US)
  Receive Date: 20140424
  Receipt Date: 20140424
  Transmission Date: 20141212
  Serious: Yes (Other)
  Sender: FDA-Public Use
  Company Number: US-BRISTOL-MYERS SQUIBB COMPANY-20215588

PATIENT
  Age: 80 Year
  Sex: Female

DRUGS (8)
  1. ELIQUIS [Suspect]
     Indication: EMBOLISM
     Dates: start: 20140203, end: 20140210
  2. ELIQUIS [Suspect]
     Indication: ATRIAL FIBRILLATION
     Dates: start: 20140203, end: 20140210
  3. COREG [Concomitant]
  4. CRESTOR [Concomitant]
  5. FISH OIL [Concomitant]
  6. BIOTIN [Concomitant]
  7. CITRACAL [Concomitant]
  8. AZOR [Concomitant]

REACTIONS (4)
  - Gastrointestinal haemorrhage [Recovered/Resolved]
  - Gingival bleeding [Recovered/Resolved]
  - Rectal haemorrhage [Recovered/Resolved]
  - International normalised ratio increased [Unknown]
